FAERS Safety Report 8805394 (Version 2)
Quarter: 2012Q4

REPORT INFORMATION
  Report Type: Report from Study
  Country: JP (occurrence: JP)
  Receive Date: 20120924
  Receipt Date: 20121101
  Transmission Date: 20130627
  Serious: Yes (Hospitalization)
  Sender: FDA-Public Use
  Company Number: JP-CELGENEUS-087-21660-12090967

PATIENT
  Age: 68 Year
  Sex: Male
  Weight: 49 kg

DRUGS (14)
  1. ABRAXANE [Suspect]
     Indication: GASTRIC CANCER
     Dosage: 394 Milligram
     Route: 065
     Dates: start: 20120421, end: 20120625
  2. ABRAXANE [Suspect]
     Dosage: 350 Milligram
     Route: 065
     Dates: start: 20120718, end: 20120808
  3. TS-1 [Suspect]
     Indication: GASTRIC CANCER
     Dosage: 120 Milligram
     Route: 048
     Dates: start: 20120421, end: 20120801
  4. TS-1 [Suspect]
     Dosage: 120 Milligram
     Route: 048
     Dates: start: 20120808, end: 20120822
  5. TAKEPRON [Concomitant]
     Indication: DRUG USE FOR UNKNOWN INDICATION
     Dosage: 30 Milligram
     Route: 048
     Dates: end: 20120905
  6. GASMOTIN [Concomitant]
     Indication: DRUG USE FOR UNKNOWN INDICATION
     Dosage: 15 Milligram
     Route: 048
     Dates: end: 20120906
  7. FERROMIA [Concomitant]
     Indication: ANAEMIA
     Dosage: 100 Milligram
     Route: 048
     Dates: end: 20120906
  8. RACOL-NF [Concomitant]
     Indication: ANOREXIA
     Dosage: 400 milliliter
     Route: 048
     Dates: end: 20120906
  9. NAUZELIN [Concomitant]
     Indication: NAUSEA
     Dosage: 30 Milligram
     Route: 048
     Dates: start: 20120604, end: 20120906
  10. HIRUDOID [Concomitant]
     Indication: PALMAR-PLANTAR ERYTHRODYSAESTHESIA SYNDROME
     Route: 065
     Dates: start: 20120718, end: 20120906
  11. GOSHAJINKIGAN [Concomitant]
     Indication: PERIPHERAL SENSORY NEUROPATHY
     Dosage: 7.5 Gram
     Route: 048
     Dates: start: 20120808, end: 20120906
  12. SANCOBA [Concomitant]
     Indication: LACRIMATION
     Route: 031
     Dates: start: 20120808, end: 20120906
  13. PROMAC [Concomitant]
     Indication: DRUG USE FOR UNKNOWN INDICATION
     Dosage: 150 Milligram
     Route: 048
     Dates: start: 20120823, end: 20120906
  14. LYRICA [Concomitant]
     Indication: PERIPHERAL SENSORY NEUROPATHY
     Dosage: 150 Milligram
     Route: 048
     Dates: start: 20120829, end: 20120906

REACTIONS (2)
  - Pyloric stenosis [Recovered/Resolved]
  - Decreased appetite [Recovering/Resolving]
